FAERS Safety Report 24913068 (Version 3)
Quarter: 2025Q3

REPORT INFORMATION
  Report Type: Spontaneous
  Country: US (occurrence: US)
  Receive Date: 20250201
  Receipt Date: 20250816
  Transmission Date: 20251020
  Serious: No
  Sender: ALEXION PHARMACEUTICALS
  Company Number: US-AstraZeneca-CH-00789792AP

PATIENT
  Age: 83 Year
  Sex: Female

DRUGS (1)
  1. SYMBICORT [Suspect]
     Active Substance: BUDESONIDE\FORMOTEROL FUMARATE DIHYDRATE
     Route: 065

REACTIONS (6)
  - Wrong technique in device usage process [Unknown]
  - Intentional product misuse [Unknown]
  - Drug ineffective [Unknown]
  - Device use error [Unknown]
  - Medication error [Unknown]
  - Device use error [Unknown]

NARRATIVE: CASE EVENT DATE: 20250121
